FAERS Safety Report 10612104 (Version 1)
Quarter: 2014Q4

REPORT INFORMATION
  Report Type: Spontaneous
  Country: US (occurrence: US)
  Receive Date: 20141127
  Receipt Date: 20141127
  Transmission Date: 20150529
  Serious: No
  Sender: FDA-Public Use
  Company Number: US-009507513-1411USA009588

PATIENT

DRUGS (1)
  1. PROVENTIL [Suspect]
     Active Substance: ALBUTEROL
     Dosage: 1-2 PUFFS TWICE A DAY, AS NEEDED
     Route: 055
     Dates: start: 2013

REACTIONS (3)
  - No adverse event [Unknown]
  - Product quality issue [Unknown]
  - Underdose [Unknown]
